FAERS Safety Report 5407770-4 (Version None)
Quarter: 2007Q3

REPORT INFORMATION
  Report Type: 
  Country: None (occurrence: None)
  Receive Date: 20070803
  Receipt Date: 20070720
  Transmission Date: 20080115
  Serious: Yes (Death, Hospitalization)
  Sender: FDA-Public Use
  Company Number: POMP-11128

PATIENT
  Age: 3 Month
  Sex: Male
  Weight: 5.59 kg

DRUGS (3)
  1. MYOZYME [Suspect]
     Indication: GLYCOGEN STORAGE DISEASE TYPE II
     Dosage: 17.89 MG/KG Q2WKS IV
     Route: 042
     Dates: start: 20070607, end: 20070607
  2. DIGOXIN [Concomitant]
  3. DIURETICS [Concomitant]

REACTIONS (3)
  - CARDIAC DISORDER [None]
  - COMA [None]
  - DISEASE PROGRESSION [None]
